FAERS Safety Report 15278155 (Version 6)
Quarter: 2020Q1

REPORT INFORMATION
  Report Type: Spontaneous
  Country: US (occurrence: US)
  Receive Date: 20180814
  Receipt Date: 20200316
  Transmission Date: 20200409
  Serious: No
  Sender: FDA-Public Use
  Company Number: US-ACTELION-A-NJ2018-177184

PATIENT
  Sex: Female
  Weight: 84.81 kg

DRUGS (5)
  1. ADCIRCA [Concomitant]
     Active Substance: TADALAFIL
  2. ADEMPAS [Concomitant]
     Active Substance: RIOCIGUAT
  3. UPTRAVI [Suspect]
     Active Substance: SELEXIPAG
     Indication: PULMONARY ARTERIAL HYPERTENSION
     Dosage: 1600 MCG, BID
     Route: 048
  4. AMLODIPINE [Concomitant]
     Active Substance: AMLODIPINE BESYLATE
  5. LETAIRIS [Concomitant]
     Active Substance: AMBRISENTAN

REACTIONS (9)
  - Unevaluable event [Unknown]
  - Oxygen saturation decreased [Unknown]
  - Dyspepsia [Unknown]
  - Cough [Unknown]
  - Haemoptysis [Unknown]
  - Inappropriate schedule of product administration [Unknown]
  - Polyarthritis [Unknown]
  - Hypotension [Unknown]
  - Lung disorder [Unknown]
